FAERS Safety Report 8512294-1 (Version None)
Quarter: 2012Q3

REPORT INFORMATION
  Report Type: 
  Country: None (occurrence: None)
  Receive Date: 20120716
  Receipt Date: 20120704
  Transmission Date: 20120928
  Serious: Yes (Hospitalization, Other)
  Sender: FDA-Public Use
  Company Number: GR-ACTELION-A-CH2012-68431

PATIENT
  Age: 52 Year
  Sex: Female

DRUGS (3)
  1. DILTIAZEM HCL [Concomitant]
  2. TRACLEER [Suspect]
     Indication: DIGITAL ULCER
     Dosage: 62.5 MG, BID
     Route: 048
  3. MEDROL [Concomitant]

REACTIONS (5)
  - ENDOMETRIAL HYPERPLASIA [None]
  - HAEMATOCRIT DECREASED [None]
  - ENDOMETRIAL ABLATION [None]
  - UTERINE DILATION AND CURETTAGE [None]
  - METRORRHAGIA [None]
